FAERS Safety Report 4556999-6 (Version None)
Quarter: 2005Q1

REPORT INFORMATION
  Report Type: 
  Country: None (occurrence: None)
  Receive Date: 20050118
  Receipt Date: 20050103
  Transmission Date: 20050727
  Serious: Yes (Hospitalization)
  Sender: FDA-Public Use
  Company Number: 2005-0007892

PATIENT
  Age: 61 Year
  Sex: Female

DRUGS (5)
  1. VIREAD [Suspect]
     Indication: ASYMPTOMATIC HIV INFECTION
     Dosage: 300 MG, 1 IN 1 D, ORAL
     Route: 048
     Dates: start: 20040801, end: 20041203
  2. BACTRIM [Suspect]
     Indication: PROPHYLAXIS
     Dosage: 1 DOSAGE FORMS, 3 IN 1 D, ORAL
     Route: 048
     Dates: start: 20040801, end: 20041203
  3. ZIAGEN [Suspect]
     Indication: ASYMPTOMATIC HIV INFECTION
     Dosage: 600 MG, 1 IN 1 D, ORAL
     Route: 048
     Dates: start: 20040910, end: 20041203
  4. REYATAZ [Concomitant]
  5. RISPERDAL [Concomitant]

REACTIONS (10)
  - ANAEMIA MACROCYTIC [None]
  - ASTHENIA [None]
  - BLOOD BILIRUBIN INCREASED [None]
  - BLOOD LACTATE DEHYDROGENASE INCREASED [None]
  - BONE MARROW DISORDER [None]
  - DISEASE RECURRENCE [None]
  - DRUG TOXICITY [None]
  - HAEMOLYSIS [None]
  - NAUSEA [None]
  - PANCYTOPENIA [None]
